FAERS Safety Report 7167281-5 (Version None)
Quarter: 2010Q4

REPORT INFORMATION
  Report Type: 
  Country: None (occurrence: None)
  Receive Date: 20101216
  Receipt Date: 20101209
  Transmission Date: 20110411
  Serious: Yes (Hospitalization)
  Sender: FDA-Public Use
  Company Number: JP-MERCK-1010USA03425

PATIENT
  Age: 57 Year
  Sex: Male

DRUGS (11)
  1. PEPCID RPD [Suspect]
     Indication: PROPHYLAXIS
     Route: 048
     Dates: start: 20100327
  2. PIRFENIDONE [Suspect]
     Indication: INTERSTITIAL LUNG DISEASE
     Route: 065
     Dates: start: 20100823, end: 20100912
  3. PIRFENIDONE [Suspect]
     Route: 065
     Dates: start: 20100913, end: 20100916
  4. PREDONINE [Concomitant]
     Route: 065
     Dates: start: 20100327, end: 20100825
  5. METHYCOBAL [Concomitant]
     Route: 065
     Dates: start: 20100807
  6. AMOBAN [Concomitant]
     Route: 065
     Dates: start: 20100814, end: 20100922
  7. PYDOXAL [Concomitant]
     Route: 065
     Dates: start: 20100807
  8. FOSAMAX [Concomitant]
     Route: 065
     Dates: start: 20100327, end: 20100920
  9. SENNOSIDES [Concomitant]
     Route: 065
     Dates: start: 20100806, end: 20100825
  10. MUCOSTA [Concomitant]
     Route: 065
     Dates: start: 20100327
  11. URSO 250 [Concomitant]
     Route: 065
     Dates: start: 20000101

REACTIONS (3)
  - AGRANULOCYTOSIS [None]
  - DRUG INTERACTION [None]
  - FEBRILE NEUTROPENIA [None]
